FAERS Safety Report 14537173 (Version 1)
Quarter: 2018Q1

REPORT INFORMATION
  Report Type: Report from Study
  Country: US (occurrence: US)
  Receive Date: 20180215
  Receipt Date: 20180215
  Transmission Date: 20180509
  Serious: Yes (Hospitalization)
  Sender: FDA-Public Use
  Company Number: US-EXELIXIS-CABO-18012197

PATIENT
  Sex: Male

DRUGS (14)
  1. DURAGESIC [Concomitant]
     Active Substance: FENTANYL
  2. KEPPRA [Concomitant]
     Active Substance: LEVETIRACETAM
  3. NIZORAL [Concomitant]
     Active Substance: KETOCONAZOLE
  4. DIALYVITE [Concomitant]
     Active Substance: ASCORBIC ACID\BIOTIN\CALCIUM PANTOTHENATE\COBALAMIN\FOLIC ACID\NIACINAMIDE\PYRIDOXINE HYDROCHLORIDE\RIBOFLAVIN\THIAMINE MONONITRATE
  5. CABOMETYX [Suspect]
     Active Substance: CABOZANTINIB S-MALATE
     Indication: RENAL CANCER
     Dosage: 60 MG, QD
     Route: 048
     Dates: start: 20171221
  6. PRILOSEC [Concomitant]
     Active Substance: OMEPRAZOLE MAGNESIUM
  7. OXYCODONE [Concomitant]
     Active Substance: OXYCODONE
  8. TYLENOL [Concomitant]
     Active Substance: ACETAMINOPHEN
  9. DIPROLENE [Concomitant]
     Active Substance: BETAMETHASONE DIPROPIONATE
  10. SENOKOT [Concomitant]
     Active Substance: SENNOSIDES
  11. IMITREX [Concomitant]
     Active Substance: SUMATRIPTAN SUCCINATE
  12. CORTEF [Concomitant]
     Active Substance: HYDROCORTISONE
  13. ZOFRAN [Concomitant]
     Active Substance: ONDANSETRON HYDROCHLORIDE
  14. COMPAZINE [Concomitant]
     Active Substance: PROCHLORPERAZINE MALEATE

REACTIONS (2)
  - Drug ineffective [Unknown]
  - Malaise [Unknown]
